FAERS Safety Report 17612072 (Version 2)
Quarter: 2020Q2

REPORT INFORMATION
  Report Type: Report from Study
  Country: US (occurrence: US)
  Receive Date: 20200401
  Receipt Date: 20200508
  Transmission Date: 20200713
  Serious: Yes (Death, Hospitalization)
  Sender: FDA-Public Use
  Company Number: US-EISAI MEDICAL RESEARCH-EC-2020-072181

PATIENT
  Age: 67 Year
  Sex: Male
  Weight: 88 kg

DRUGS (7)
  1. LENVIMA [Suspect]
     Active Substance: LENVATINIB
     Indication: HEPATOCELLULAR CARCINOMA
     Route: 048
     Dates: start: 20200221, end: 202003
  2. COQ10 [Concomitant]
     Active Substance: UBIDECARENONE
  3. MULTIVITAMINS [Concomitant]
     Active Substance: VITAMINS
  4. NORCO [Concomitant]
     Active Substance: ACETAMINOPHEN\HYDROCODONE BITARTRATE
  5. GABAPENTIN. [Concomitant]
     Active Substance: GABAPENTIN
  6. TURMERIC [Concomitant]
     Active Substance: HERBALS\TURMERIC
  7. PREDNISONE. [Concomitant]
     Active Substance: PREDNISONE

REACTIONS (8)
  - Decreased appetite [Unknown]
  - Dysphonia [Unknown]
  - Dehydration [Unknown]
  - Death [Fatal]
  - Balance disorder [Unknown]
  - Pain [Unknown]
  - Dizziness [Unknown]
  - Pulmonary embolism [Unknown]

NARRATIVE: CASE EVENT DATE: 2020
